FAERS Safety Report 6308741-6 (Version None)
Quarter: 2009Q3

REPORT INFORMATION
  Report Type: 
  Country: None (occurrence: None)
  Receive Date: 20090813
  Receipt Date: 20080320
  Transmission Date: 20100115
  Serious: No
  Sender: FDA-Public Use
  Company Number: US-ALLERGAN-0803344US

PATIENT
  Age: 74 Year
  Sex: Male

DRUGS (4)
  1. COMBIGAN [Suspect]
     Indication: GLAUCOMA
     Dosage: UNK, UNK
     Route: 047
  2. LUMIGAN [Suspect]
     Indication: GLAUCOMA
     Dosage: UNK, UNK
  3. ZETIA [Concomitant]
  4. LOTENSIN [Concomitant]

REACTIONS (1)
  - PRURITUS [None]
